FAERS Safety Report 7139408-2 (Version None)
Quarter: 2010Q4

REPORT INFORMATION
  Report Type: 
  Country: None (occurrence: None)
  Receive Date: 20101206
  Receipt Date: 20101115
  Transmission Date: 20110411
  Serious: Yes (Hospitalization)
  Sender: FDA-Public Use
  Company Number: FR-PFIZER INC-2010147686

PATIENT
  Age: 23 Year
  Sex: Male

DRUGS (3)
  1. ADVIL [Suspect]
     Dosage: UNK
     Route: 048
     Dates: start: 20090328, end: 20090406
  2. EFFERALGAN [Suspect]
     Dosage: UNK
     Route: 048
     Dates: start: 20090328, end: 20090406
  3. TOPLEXIL ^SPECIA^ [Suspect]
     Dosage: UNK
     Route: 048
     Dates: start: 20090328, end: 20090406

REACTIONS (2)
  - SKIN TEST NEGATIVE [None]
  - STEVENS-JOHNSON SYNDROME [None]
